FAERS Safety Report 15298545 (Version 1)
Quarter: 2018Q3

REPORT INFORMATION
  Report Type: Spontaneous
  Country: FR (occurrence: FR)
  Receive Date: 20180820
  Receipt Date: 20180820
  Transmission Date: 20181010
  Serious: Yes (Hospitalization, Other)
  Sender: FDA-Public Use
  Company Number: FR-MUNDIPHARMA DS AND PHARMACOVIGILANCE-GBR-2014-0021732

PATIENT
  Age: 32 Year
  Sex: Female

DRUGS (1)
  1. OXYNORM 10MG/ML SOLUTION INJECTABLE [Suspect]
     Active Substance: OXYCODONE HYDROCHLORIDE
     Indication: PAIN
     Dosage: 2 VIALS OF 100MG/ML
     Route: 040
     Dates: start: 20140901, end: 20140901

REACTIONS (5)
  - Hypotonic-hyporesponsive episode [Recovered/Resolved]
  - Respiratory rate decreased [Recovered/Resolved]
  - Pallor [Recovered/Resolved]
  - Drug administration error [Recovered/Resolved]
  - Eye movement disorder [Recovered/Resolved]

NARRATIVE: CASE EVENT DATE: 20140901
